APPROVED DRUG PRODUCT: DIDANOSINE
Active Ingredient: DIDANOSINE
Strength: 200MG
Dosage Form/Route: TABLET, FOR SUSPENSION;ORAL
Application: A077275 | Product #003
Applicant: AUROBINDO PHARMA LTD
Approved: Aug 14, 2012 | RLD: No | RS: No | Type: DISCN